FAERS Safety Report 17498391 (Version 2)
Quarter: 2021Q3

REPORT INFORMATION
  Report Type: Spontaneous
  Country: US (occurrence: US)
  Receive Date: 20200304
  Receipt Date: 20210730
  Transmission Date: 20211014
  Serious: Yes (Other)
  Sender: FDA-Public Use
  Company Number: US-PFIZER INC-2020096687

PATIENT
  Age: 78 Year
  Sex: Female
  Weight: 57.61 kg

DRUGS (1)
  1. XELJANZ XR [Suspect]
     Active Substance: TOFACITINIB CITRATE
     Indication: RHEUMATOID ARTHRITIS
     Dosage: 11 MG, DAILY
     Route: 048
     Dates: start: 2015

REACTIONS (10)
  - Cataract [Unknown]
  - Gait disturbance [Unknown]
  - Product distribution issue [Unknown]
  - Arthralgia [Unknown]
  - Eating disorder [Unknown]
  - Illness [Unknown]
  - Cyst rupture [Unknown]
  - Joint effusion [Unknown]
  - Joint swelling [Unknown]
  - Hypoacusis [Unknown]

NARRATIVE: CASE EVENT DATE: 201912
